FAERS Safety Report 10043953 (Version 2)
Quarter: 2014Q1

REPORT INFORMATION
  Report Type: Spontaneous
  Country: US (occurrence: US)
  Receive Date: 20140328
  Receipt Date: 20140328
  Transmission Date: 20141002
  Serious: No
  Sender: FDA-Public Use
  Company Number: US-MYLANLABS-2013S1010729

PATIENT
  Age: 44 Year
  Sex: Female
  Weight: 62.6 kg

DRUGS (6)
  1. EMSAM (SELEGILINE TRANSDERMAL SYSTEM) [Suspect]
     Indication: DEPRESSION
     Dosage: QD
     Route: 062
     Dates: start: 201304, end: 201305
  2. PREVACID [Concomitant]
  3. ZANTAC [Concomitant]
  4. MAGNESIUM [Concomitant]
  5. IBUPROFEN [Concomitant]
  6. XANAX [Concomitant]

REACTIONS (7)
  - Drug ineffective [Recovered/Resolved]
  - Depression [Recovered/Resolved]
  - Musculoskeletal stiffness [Recovered/Resolved]
  - Nausea [Not Recovered/Not Resolved]
  - Dizziness [Not Recovered/Not Resolved]
  - Pain in extremity [Recovered/Resolved]
  - Expired drug administered [Recovered/Resolved]
